FAERS Safety Report 8428307-1 (Version None)
Quarter: 2012Q2

REPORT INFORMATION
  Report Type: 
  Country: None (occurrence: None)
  Receive Date: 20120611
  Receipt Date: 20120601
  Transmission Date: 20120825
  Serious: No
  Sender: FDA-Public Use
  Company Number: US-B.I. PHARMACEUTICALS,INC./RIDGEFIELD-2011-BP-05592BP

PATIENT
  Sex: Female

DRUGS (15)
  1. CHLORTHALIDONE [Concomitant]
     Indication: HYPERTENSION
     Dosage: 25 MG
     Route: 048
  2. PRIMIDONE [Concomitant]
     Indication: ESSENTIAL TREMOR
     Route: 048
  3. PRADAXA [Suspect]
     Dosage: 300 MG
     Route: 048
     Dates: start: 20120601
  4. AMIODARONE HCL [Concomitant]
     Indication: ATRIAL FIBRILLATION
     Dosage: 100 MG
     Route: 048
  5. THYROID TAB [Concomitant]
     Indication: HYPOTHYROIDISM
     Dosage: 30 MG
     Route: 048
  6. PRAVASTATIN [Concomitant]
     Indication: BLOOD CHOLESTEROL INCREASED
     Dosage: 40 MG
     Route: 048
  7. SPIRONOLACTONE [Concomitant]
     Indication: HYPERTENSION
     Dosage: 25 MG
     Route: 048
  8. DIAZEPAM [Concomitant]
     Indication: ESSENTIAL TREMOR
     Dosage: 5 MG
     Route: 048
  9. VITAMIN B COMPLEX CAP [Concomitant]
     Indication: SUPPLEMENTATION THERAPY
     Route: 048
  10. ATENOLOL [Concomitant]
     Indication: HYPERTENSION
     Dosage: 50 MG
     Route: 048
  11. AMLODIPINE BESYLATE AND BENAZEPRIL HCL [Concomitant]
     Indication: HYPERTENSION
     Route: 048
  12. ATENOLOL [Concomitant]
     Indication: ESSENTIAL TREMOR
  13. PRADAXA [Suspect]
     Indication: ATRIAL FIBRILLATION
     Dosage: 300 MG
     Route: 048
     Dates: start: 20100101, end: 20110101
  14. LEVOTHYROXINE SODIUM [Concomitant]
     Indication: HYPOTHYROIDISM
     Dosage: 75 MCG
     Route: 048
  15. VITAMIN B-12 [Concomitant]
     Indication: SUPPLEMENTATION THERAPY
     Route: 048

REACTIONS (7)
  - BALANCE DISORDER [None]
  - ASTHENIA [None]
  - INFLUENZA LIKE ILLNESS [None]
  - CONTUSION [None]
  - DIZZINESS [None]
  - RASH MACULAR [None]
  - FEELING ABNORMAL [None]
